FAERS Safety Report 16130797 (Version 1)
Quarter: 2019Q1

REPORT INFORMATION
  Report Type: Spontaneous
  Country: GB (occurrence: GB)
  Receive Date: 20190328
  Receipt Date: 20190328
  Transmission Date: 20190418
  Serious: Yes (Other)
  Sender: FDA-Public Use
  Company Number: GB-TEVA-2019-GB-1030885

PATIENT
  Age: 30 Year
  Sex: Female
  Weight: 136.52 kg

DRUGS (1)
  1. FLUOXETINE [Suspect]
     Active Substance: FLUOXETINE HYDROCHLORIDE
     Indication: ANXIETY
     Dosage: 20MG ONCE A DAY
     Route: 048
     Dates: start: 20190301

REACTIONS (2)
  - Abdominal pain upper [Not Recovered/Not Resolved]
  - Flatulence [Recovering/Resolving]

NARRATIVE: CASE EVENT DATE: 20190302
